FAERS Safety Report 14647108 (Version 7)
Quarter: 2018Q2

REPORT INFORMATION
  Report Type: Report from Study
  Country: JP (occurrence: JP)
  Receive Date: 20180316
  Receipt Date: 20180601
  Transmission Date: 20180711
  Serious: Yes (Hospitalization)
  Sender: FDA-Public Use
  Company Number: JP-EMD SERONO-E2B_90028792

PATIENT
  Age: 80 Year
  Sex: Male
  Weight: 62 kg

DRUGS (3)
  1. CAPECITABINE. [Suspect]
     Active Substance: CAPECITABINE
     Indication: ADENOCARCINOMA GASTRIC
     Route: 048
     Dates: start: 20170601, end: 20170817
  2. OXALIPLATIN. [Suspect]
     Active Substance: OXALIPLATIN
     Indication: ADENOCARCINOMA GASTRIC
     Route: 042
     Dates: start: 20170601, end: 20170803
  3. AVELUMAB [Suspect]
     Active Substance: AVELUMAB
     Indication: ADENOCARCINOMA GASTRIC
     Route: 042
     Dates: start: 20170831, end: 20180201

REACTIONS (1)
  - Hypophysitis [Not Recovered/Not Resolved]

NARRATIVE: CASE EVENT DATE: 20180226
